FAERS Safety Report 4918054-2 (Version None)
Quarter: 2006Q1

REPORT INFORMATION
  Report Type: 
  Country: None (occurrence: None)
  Receive Date: 20060221
  Receipt Date: 20050817
  Transmission Date: 20060701
  Serious: Yes (Hospitalization)
  Sender: FDA-Public Use
  Company Number: US-MERCK-0508USA03283

PATIENT
  Age: 83 Year
  Sex: Female
  Weight: 73 kg

DRUGS (13)
  1. VIOXX [Suspect]
     Indication: ARTHRITIS
     Route: 048
     Dates: start: 19990601, end: 20040901
  2. VIOXX [Suspect]
     Route: 048
     Dates: start: 19990601, end: 20040901
  3. VIOXX [Suspect]
     Indication: OSTEOPOROSIS
     Route: 048
     Dates: start: 19990601, end: 20040901
  4. VIOXX [Suspect]
     Route: 048
     Dates: start: 19990601, end: 20040901
  5. BEXTRA [Concomitant]
     Route: 048
  6. ASPIRIN [Concomitant]
     Route: 048
  7. POTASSIUM (UNSPECIFIED) [Concomitant]
     Route: 048
  8. HYDROCHLOROTHIAZIDE [Concomitant]
     Route: 048
  9. NORVASC [Concomitant]
     Route: 048
  10. PLAVIX [Concomitant]
     Route: 048
  11. PRINIVIL [Concomitant]
     Route: 048
  12. TENORMIN [Concomitant]
     Route: 048
  13. TIMOPTIC [Concomitant]
     Route: 047

REACTIONS (31)
  - AORTIC VALVE STENOSIS [None]
  - APHASIA [None]
  - BLADDER NEOPLASM [None]
  - BUNDLE BRANCH BLOCK RIGHT [None]
  - CARDIAC MURMUR [None]
  - CAROTID ARTERY STENOSIS [None]
  - CEREBRAL ATROPHY [None]
  - CONFUSIONAL STATE [None]
  - CYSTITIS NONINFECTIVE [None]
  - DIASTOLIC DYSFUNCTION [None]
  - ESSENTIAL HYPERTENSION [None]
  - EXTRASYSTOLES [None]
  - HAEMATURIA [None]
  - HYPERTENSION [None]
  - HYPERTHYROIDISM [None]
  - HYPOKALAEMIA [None]
  - LOSS OF CONSCIOUSNESS [None]
  - MASS [None]
  - MUSCLE TWITCHING [None]
  - OSTEOARTHRITIS [None]
  - PELVIC FRACTURE [None]
  - RENAL DISORDER [None]
  - SINUS TACHYCARDIA [None]
  - STARING [None]
  - SUPRAVENTRICULAR EXTRASYSTOLES [None]
  - TRANSIENT ISCHAEMIC ATTACK [None]
  - URETHRAL NEOPLASM [None]
  - URETHRITIS [None]
  - URINARY TRACT INFECTION [None]
  - VENTRICULAR EXTRASYSTOLES [None]
  - VENTRICULAR HYPERTROPHY [None]
